FAERS Safety Report 14482157 (Version 4)
Quarter: 2019Q1

REPORT INFORMATION
  Report Type: Report from Study
  Country: US (occurrence: US)
  Receive Date: 20180202
  Receipt Date: 20190208
  Transmission Date: 20190417
  Serious: Yes (Hospitalization)
  Sender: FDA-Public Use
  Company Number: US-ACTELION-A-US2018-166835

PATIENT
  Age: 61 Year
  Sex: Female

DRUGS (27)
  1. FUROSEMIDE. [Concomitant]
     Active Substance: FUROSEMIDE
  2. TEMAZEPAM. [Concomitant]
     Active Substance: TEMAZEPAM
  3. FISH OIL [Concomitant]
     Active Substance: FISH OIL
  4. LEVOTHYROXIN [Concomitant]
     Active Substance: LEVOTHYROXINE
  5. PILOCARPINE. [Concomitant]
     Active Substance: PILOCARPINE
  6. REMODULIN [Suspect]
     Active Substance: TREPROSTINIL
     Indication: PRODUCT USED FOR UNKNOWN INDICATION
     Dosage: 44 NG/KG, PER MIN
     Route: 065
  7. OMEGA 3 [Concomitant]
     Active Substance: OMEGA-3 FATTY ACIDS
  8. PROBIOTIC [Concomitant]
     Active Substance: PROBIOTICS NOS
  9. VITAMIN D3 [Concomitant]
     Active Substance: CHOLECALCIFEROL
  10. OPSUMIT [Suspect]
     Active Substance: MACITENTAN
     Indication: PULMONARY ARTERIAL HYPERTENSION
     Dosage: 10 MG, QD
     Route: 048
     Dates: start: 20160420
  11. ASPIRIN. [Concomitant]
     Active Substance: ASPIRIN
  12. MAGNESIUM OXIDE. [Concomitant]
     Active Substance: MAGNESIUM OXIDE
  13. NYSTATIN. [Concomitant]
     Active Substance: NYSTATIN
  14. DULOXETINE. [Concomitant]
     Active Substance: DULOXETINE
  15. LIDOCAINE. [Concomitant]
     Active Substance: LIDOCAINE
  16. POTASSIUM CHLORIDE. [Concomitant]
     Active Substance: POTASSIUM CHLORIDE
  17. SPIRONOLACTONE. [Concomitant]
     Active Substance: SPIRONOLACTONE
  18. FLUTICASONE. [Concomitant]
     Active Substance: FLUTICASONE
  19. METOCLOPRAM [Concomitant]
     Active Substance: METOCLOPRAMIDE
  20. OMEPRAZOLE. [Concomitant]
     Active Substance: OMEPRAZOLE
  21. AMOXICILLIN AND CLAVULANATE POTASSIUM [Concomitant]
     Active Substance: AMOXICILLIN\CLAVULANATE POTASSIUM
  22. VITAMIN B COMPLEX/B12 [Concomitant]
  23. DOK [Concomitant]
     Active Substance: DOCUSATE SODIUM
  24. FLUCONAZOLE. [Concomitant]
     Active Substance: FLUCONAZOLE
  25. LIOTHYRONINE [Concomitant]
     Active Substance: LIOTHYRONINE
  26. LOVENOX [Concomitant]
     Active Substance: ENOXAPARIN SODIUM
  27. SILDENAFIL. [Concomitant]
     Active Substance: SILDENAFIL

REACTIONS (6)
  - Vomiting [Unknown]
  - Gallbladder operation [Not Recovered/Not Resolved]
  - Cholelithiasis [Unknown]
  - Nausea [Unknown]
  - Cholecystectomy [Unknown]
  - Dyspnoea [Unknown]

NARRATIVE: CASE EVENT DATE: 201801
